FAERS Safety Report 15393237 (Version 1)
Quarter: 2018Q3

REPORT INFORMATION
  Report Type: Other
  Country: US (occurrence: US)
  Receive Date: 20180917
  Receipt Date: 20180917
  Transmission Date: 20181010
  Serious: Yes (Hospitalization, Other)
  Sender: FDA-Public Use
  Company Number: US-LEADIANT BIOSCIENCES INC-2017STPI000643

PATIENT
  Sex: Male

DRUGS (17)
  1. PLAVIX [Concomitant]
     Active Substance: CLOPIDOGREL BISULFATE
  2. CRESTOR [Concomitant]
     Active Substance: ROSUVASTATIN CALCIUM
  3. XARELTO [Concomitant]
     Active Substance: RIVAROXABAN
  4. MATULANE [Suspect]
     Active Substance: PROCARBAZINE HYDROCHLORIDE
     Indication: HODGKIN^S DISEASE
     Dosage: 200 MG, DAILY
     Route: 048
     Dates: start: 20170505
  5. DONEPEZIL. [Concomitant]
     Active Substance: DONEPEZIL
  6. PREDNISONE. [Concomitant]
     Active Substance: PREDNISONE
  7. ALAVERT ALLERGY [Concomitant]
     Active Substance: LORATADINE
  8. ASPIRIN                            /00002701/ [Concomitant]
     Active Substance: ASPIRIN
  9. AMIODARONE [Concomitant]
     Active Substance: AMIODARONE
  10. METFORMIN [Concomitant]
     Active Substance: METFORMIN HYDROCHLORIDE
  11. VITAMIN B6 [Concomitant]
     Active Substance: PYRIDOXINE HYDROCHLORIDE
  12. LEVETIRACETAM. [Concomitant]
     Active Substance: LEVETIRACETAM
  13. PANTOPRAZOLE [Concomitant]
     Active Substance: PANTOPRAZOLE
  14. ALTACE [Concomitant]
     Active Substance: RAMIPRIL
  15. COREG [Concomitant]
     Active Substance: CARVEDILOL
  16. METOPROLOL. [Concomitant]
     Active Substance: METOPROLOL
  17. FOLIC ACID. [Concomitant]
     Active Substance: FOLIC ACID

REACTIONS (1)
  - Seizure [Not Recovered/Not Resolved]
